FAERS Safety Report 5087743-4 (Version None)
Quarter: 2006Q3

REPORT INFORMATION
  Report Type: 
  Country: None (occurrence: None)
  Receive Date: 20060822
  Receipt Date: 20060822
  Transmission Date: 20061208
  Serious: No
  Sender: FDA-Public Use
  Company Number: None

PATIENT
  Sex: Female
  Weight: 107.5025 kg

DRUGS (2)
  1. CITALOPRAM HYDROBROMIDE [Suspect]
     Indication: ANXIETY
     Dosage: 30MG  QD  PO
     Route: 048
     Dates: start: 20041101
  2. CITALOPRAM HYDROBROMIDE [Suspect]
     Indication: DEPRESSION
     Dosage: 30MG  QD  PO
     Route: 048
     Dates: start: 20041101

REACTIONS (3)
  - ANXIETY [None]
  - DEPRESSION [None]
  - DISEASE RECURRENCE [None]
